FAERS Safety Report 7320240-1 (Version None)
Quarter: 2011Q1

REPORT INFORMATION
  Report Type: 
  Country: None (occurrence: None)
  Receive Date: 20110228
  Receipt Date: 20110215
  Transmission Date: 20110831
  Serious: Yes (Other)
  Sender: FDA-Public Use
  Company Number: NO-WATSON-2011-02134

PATIENT
  Age: 75 Year
  Sex: Male

DRUGS (4)
  1. RAMIPRIL [Suspect]
     Indication: PRODUCT USED FOR UNKNOWN INDICATION
     Dosage: UNK
     Route: 065
  2. METOPROLOL (WATSON LABORATORIES) [Suspect]
     Indication: PRODUCT USED FOR UNKNOWN INDICATION
     Dosage: UNK
     Route: 065
  3. BUMETANIDE [Suspect]
     Indication: PRODUCT USED FOR UNKNOWN INDICATION
     Dosage: UNK
     Route: 065
  4. SPIRONOLACTONE [Suspect]
     Indication: PRODUCT USED FOR UNKNOWN INDICATION
     Dosage: UNK
     Route: 065

REACTIONS (11)
  - HAEMODIALYSIS [None]
  - DEPRESSED LEVEL OF CONSCIOUSNESS [None]
  - PERIPHERAL COLDNESS [None]
  - OLIGURIA [None]
  - CONFUSIONAL STATE [None]
  - ACUTE PRERENAL FAILURE [None]
  - HYPERKALAEMIA [None]
  - BRADYCARDIA [None]
  - CARDIOGENIC SHOCK [None]
  - HYPOTENSION [None]
  - METABOLIC ACIDOSIS [None]
